FAERS Safety Report 17211334 (Version 1)
Quarter: 2019Q4

REPORT INFORMATION
  Report Type: Spontaneous
  Country: US (occurrence: US)
  Receive Date: 20191228
  Receipt Date: 20191228
  Transmission Date: 20200122
  Serious: No
  Sender: FDA-Public Use
  Company Number: US-AMGEN INC.-USASP2019214145

PATIENT
  Age: 19 Year
  Sex: Female

DRUGS (1)
  1. AIMOVIG [Suspect]
     Active Substance: ERENUMAB-AOOE
     Indication: PRODUCT USED FOR UNKNOWN INDICATION
     Dosage: UNK
     Route: 065
     Dates: start: 201911, end: 2019

REACTIONS (3)
  - Dysmenorrhoea [Not Recovered/Not Resolved]
  - Menstrual disorder [Unknown]
  - Menorrhagia [Unknown]

NARRATIVE: CASE EVENT DATE: 2019
